FAERS Safety Report 21470780 (Version 1)
Quarter: 2022Q4

REPORT INFORMATION
  Report Type: Spontaneous
  Country: IN (occurrence: IN)
  Receive Date: 20221018
  Receipt Date: 20221018
  Transmission Date: 20230113
  Serious: Yes (Death, Life-Threatening, Hospitalization, Other)
  Sender: FDA-Public Use
  Company Number: IN-MLMSERVICE-20221003-3831261-1

PATIENT
  Age: 31 Year
  Sex: Male

DRUGS (1)
  1. METHOTREXATE [Suspect]
     Active Substance: METHOTREXATE
     Indication: Psoriasis
     Dosage: TABLETS

REACTIONS (14)
  - Respiratory failure [Fatal]
  - Vomiting [Fatal]
  - Overdose [Fatal]
  - Hepatic function abnormal [Fatal]
  - Incorrect dose administered [Fatal]
  - Diarrhoea [Fatal]
  - Sepsis [Fatal]
  - Pancytopenia [Fatal]
  - Mucocutaneous ulceration [Fatal]
  - Mouth ulceration [Fatal]
  - Toxicity to various agents [Fatal]
  - Acute kidney injury [Fatal]
  - Nausea [Fatal]
  - Staphylococcal infection [Fatal]
